FAERS Safety Report 8800603 (Version 2)
Quarter: 2013Q2

REPORT INFORMATION
  Report Type: Report from Study
  Country: JP (occurrence: JP)
  Receive Date: 20120921
  Receipt Date: 20130410
  Transmission Date: 20140414
  Serious: Yes (Other)
  Sender: FDA-Public Use
  Company Number: JP-VERTEX PHARMACEUTICAL INC.-AE-2012-007738

PATIENT
  Age: 45 Year
  Sex: Male

DRUGS (6)
  1. VX-950 (TELAPREVIR) [Suspect]
     Indication: CHRONIC HEPATITIS C
     Dosage: 2250 MG, QD
     Route: 048
     Dates: start: 20120514, end: 20120520
  2. REBETOL [Concomitant]
     Dosage: 800 MG, QD
     Route: 048
     Dates: start: 20120514, end: 20120520
  3. PEGINTRON [Concomitant]
     Dosage: 1.5 ?G/KG, QW
     Route: 058
     Dates: start: 20120514, end: 20120514
  4. URSO [Concomitant]
     Dosage: 600 MG, QD
     Route: 048
  5. LOXOPROFEN [Concomitant]
     Dosage: 180 MG, QD
     Route: 048
     Dates: start: 20120514, end: 20120522
  6. LANSOPRAZOLE [Concomitant]
     Dosage: UNK, QD
     Route: 048
     Dates: start: 20120514, end: 20120522

REACTIONS (3)
  - Decreased appetite [Unknown]
  - Nausea [Recovered/Resolved]
  - Vomiting [Recovered/Resolved]
